FAERS Safety Report 12427944 (Version 1)
Quarter: 2016Q2

REPORT INFORMATION
  Report Type: Report from Study
  Country: DE (occurrence: DE)
  Receive Date: 20160602
  Receipt Date: 20160602
  Transmission Date: 20160815
  Serious: Yes (Life-Threatening, Hospitalization)
  Sender: FDA-Public Use
  Company Number: DE-ROCHE-1751860

PATIENT
  Age: 55 Year
  Sex: Female

DRUGS (7)
  1. LYRICA [Concomitant]
     Active Substance: PREGABALIN
     Route: 048
  2. BEVACIZUMAB [Suspect]
     Active Substance: BEVACIZUMAB
     Indication: OVARIAN CANCER
     Dosage: LAST DOSE BEFORE SAE: 20/APR/2016?CYCLE 3
     Route: 065
     Dates: start: 20160309, end: 20160525
  3. CARBOPLATIN. [Concomitant]
     Active Substance: CARBOPLATIN
     Route: 065
     Dates: start: 201509, end: 201601
  4. CEFEXIN [Concomitant]
     Route: 048
     Dates: start: 20160506
  5. BLINDED OLAPARIB/PLACEBO [Suspect]
     Active Substance: OLAPARIB
     Indication: OVARIAN CANCER
     Dosage: LAST DOSE BEFORE SAE: 29/APR/2016?RESTART DATE 11/MAY/2016
     Route: 065
     Dates: start: 20160309, end: 20160430
  6. BEVACIZUMAB [Suspect]
     Active Substance: BEVACIZUMAB
     Route: 065
     Dates: start: 201509, end: 201601
  7. PACLITAXEL. [Concomitant]
     Active Substance: PACLITAXEL
     Route: 065
     Dates: start: 201509, end: 201601

REACTIONS (2)
  - Anaemia [Recovering/Resolving]
  - Fatigue [Not Recovered/Not Resolved]

NARRATIVE: CASE EVENT DATE: 20160429
